FAERS Safety Report 14687115 (Version 2)
Quarter: 2018Q2

REPORT INFORMATION
  Report Type: Report from Study
  Country: None (occurrence: IT)
  Receive Date: 20180328
  Receipt Date: 20180404
  Transmission Date: 20180711
  Serious: Yes (Death, Hospitalization)
  Sender: FDA-Public Use
  Company Number: IT-ABBVIE-18K-083-2298405-00

PATIENT
  Age: 82 Year
  Sex: Male

DRUGS (1)
  1. DUODOPA [Suspect]
     Active Substance: CARBIDOPA\LEVODOPA
     Indication: PARKINSON^S DISEASE
     Dosage: MD 8+3??CR 2,7??ED 2
     Route: 050
     Dates: start: 20171030, end: 20180324

REACTIONS (4)
  - Intestinal resection [Fatal]
  - Volvulus [Fatal]
  - Suture rupture [Fatal]
  - Peritonitis [Fatal]

NARRATIVE: CASE EVENT DATE: 201802
